FAERS Safety Report 14360560 (Version 1)
Quarter: 2018Q1

REPORT INFORMATION
  Report Type: Spontaneous
  Country: ES (occurrence: ES)
  Receive Date: 20180106
  Receipt Date: 20180106
  Transmission Date: 20180509
  Serious: Yes (Other)
  Sender: FDA-Public Use
  Company Number: ES-AUROBINDO-AUR-APL-2018-001065

PATIENT
  Age: 14 Year
  Sex: Male

DRUGS (1)
  1. ARIPIPRAZOL [Suspect]
     Active Substance: ARIPIPRAZOLE
     Indication: PRODUCT USED FOR UNKNOWN INDICATION
     Dosage: ()
     Dates: start: 20170415

REACTIONS (1)
  - Dystonia [Recovered/Resolved]

NARRATIVE: CASE EVENT DATE: 20170415
